FAERS Safety Report 8762364 (Version 1)
Quarter: 2012Q4

REPORT INFORMATION
  Report Type: 
  Country: DE (occurrence: DE)
  Receive Date: 20120830
  Receipt Date: 20120830
  Transmission Date: 20130627
  Serious: Yes (Other)
  Sender: FDA-Public Use
  Company Number: GXKR2012DE002748

PATIENT
  Sex: Female

DRUGS (2)
  1. MINOCYCLIN HEXAL [Suspect]
     Indication: BORRELIA INFECTION
     Dosage: 50 mg, BID
     Route: 048
     Dates: start: 20120825, end: 20120826
  2. MINOCYCLIN HEXAL [Suspect]
     Dosage: 100 mg, BID
     Route: 048
     Dates: start: 20120827, end: 20120828

REACTIONS (3)
  - Suicidal ideation [Unknown]
  - Convulsion [Unknown]
  - Restlessness [Unknown]
